FAERS Safety Report 17903345 (Version 4)
Quarter: 2021Q3

REPORT INFORMATION
  Report Type: Other
  Country: CA (occurrence: CA)
  Receive Date: 20200617
  Receipt Date: 20210908
  Transmission Date: 20211014
  Serious: Yes (Other)
  Sender: FDA-Public Use
  Company Number: CA-ROCHE-2619422

PATIENT
  Age: 84 Year
  Sex: Male

DRUGS (13)
  1. ESBRIET [Suspect]
     Active Substance: PIRFENIDONE
     Indication: IDIOPATHIC PULMONARY FIBROSIS
     Route: 048
     Dates: start: 20200513, end: 20200519
  2. ESBRIET [Suspect]
     Active Substance: PIRFENIDONE
     Route: 048
     Dates: start: 2020, end: 2021
  3. ESBRIET [Suspect]
     Active Substance: PIRFENIDONE
     Dosage: INCREASED DOSE TO 1?2?
     Route: 048
     Dates: start: 202009
  4. PANTOPRAZOLE [Concomitant]
     Active Substance: PANTOPRAZOLE
  5. LOSARTAN. [Concomitant]
     Active Substance: LOSARTAN
  6. DONEPEZIL. [Concomitant]
     Active Substance: DONEPEZIL
  7. ESBRIET [Suspect]
     Active Substance: PIRFENIDONE
     Route: 048
     Dates: start: 20200520, end: 20200527
  8. LIPITOR [Concomitant]
     Active Substance: ATORVASTATIN CALCIUM
  9. PULMICORT TURBUHALER [Concomitant]
     Active Substance: BUDESONIDE
     Dosage: SINUS RINSE
     Route: 045
  10. ESBRIET [Suspect]
     Active Substance: PIRFENIDONE
     Route: 048
     Dates: start: 20200528, end: 20200609
  11. ESBRIET [Suspect]
     Active Substance: PIRFENIDONE
     Dosage: END DATE BETWEEN: 21 OR 22 JUN 2020 (SUSPENSION)
     Route: 048
     Dates: start: 20200610, end: 202006
  12. ACETYLSALICYLIC ACID [Concomitant]
     Active Substance: ASPIRIN
  13. ESBRIET [Suspect]
     Active Substance: PIRFENIDONE
     Indication: IDIOPATHIC PULMONARY FIBROSIS
     Route: 048
     Dates: start: 2020, end: 2020

REACTIONS (4)
  - Dementia [Unknown]
  - Lethargy [Not Recovered/Not Resolved]
  - Staring [Unknown]
  - Ill-defined disorder [Unknown]

NARRATIVE: CASE EVENT DATE: 202005
